FAERS Safety Report 5245759-9 (Version None)
Quarter: 2007Q1

REPORT INFORMATION
  Report Type: 
  Country: None (occurrence: None)
  Receive Date: 20070216
  Receipt Date: 20070205
  Transmission Date: 20070707
  Serious: Yes (Other)
  Sender: FDA-Public Use
  Company Number: SU-2007-005796

PATIENT
  Age: 82 Year
  Sex: Male
  Weight: 56.6996 kg

DRUGS (7)
  1. BENICAR [Suspect]
     Indication: HYPERTENSION
     Dosage: 20 MG QD PO
     Route: 048
     Dates: start: 20061214, end: 20061228
  2. ASPIRIN [Concomitant]
  3. PROTONIX [Concomitant]
  4. LEXAPRO [Concomitant]
  5. METOPROLOL - SLOW RELEASE [Concomitant]
  6. VITAMIN B-12 [Concomitant]
  7. FOLIC ACID [Concomitant]

REACTIONS (2)
  - RENAL ARTERY STENOSIS [None]
  - RENAL FAILURE ACUTE [None]
